FAERS Safety Report 8392020-X (Version None)
Quarter: 2012Q2

REPORT INFORMATION
  Report Type: 
  Country: None (occurrence: None)
  Receive Date: 20120529
  Receipt Date: 20120523
  Transmission Date: 20120825
  Serious: Yes (Hospitalization, Other)
  Sender: FDA-Public Use
  Company Number: CA-ROCHE-1038627

PATIENT
  Sex: Female
  Weight: 66 kg

DRUGS (8)
  1. AVASTIN [Suspect]
     Dates: start: 20120113, end: 20120126
  2. AVASTIN [Suspect]
     Dates: start: 20120503
  3. DILANTIN [Concomitant]
  4. DECADRON [Concomitant]
  5. AVASTIN [Suspect]
     Indication: GLIOBLASTOMA
     Route: 042
     Dates: start: 20111118
  6. AVASTIN [Suspect]
     Dates: start: 20120308
  7. KEPPRA [Concomitant]
  8. FRAGMIN [Concomitant]

REACTIONS (4)
  - CONVULSION [None]
  - VERTIGO [None]
  - NAUSEA [None]
  - HEADACHE [None]
